FAERS Safety Report 23654321 (Version 2)
Quarter: 2024Q1

REPORT INFORMATION
  Report Type: Spontaneous
  Country: US (occurrence: US)
  Receive Date: 20240320
  Receipt Date: 20240321
  Transmission Date: 20240409
  Serious: No
  Sender: FDA-Public Use
  Company Number: US-BIOGEN-2024BI01256057

PATIENT
  Sex: Female

DRUGS (1)
  1. TYSABRI [Suspect]
     Active Substance: NATALIZUMAB
     Indication: Multiple sclerosis
     Route: 050
     Dates: start: 20170619, end: 20200306

REACTIONS (3)
  - Multiple sclerosis relapse [Unknown]
  - Muscular dystrophy [Unknown]
  - Vertigo [Unknown]

NARRATIVE: CASE EVENT DATE: 20190101
